FAERS Safety Report 13892708 (Version 1)
Quarter: 2017Q3

REPORT INFORMATION
  Report Type: Spontaneous
  Country: US (occurrence: US)
  Receive Date: 20170822
  Receipt Date: 20170822
  Transmission Date: 20171127
  Serious: No
  Sender: FDA-Public Use
  Company Number: US-ROCHE-1284723

PATIENT
  Sex: Female

DRUGS (1)
  1. HERCEPTIN [Suspect]
     Active Substance: TRASTUZUMAB
     Indication: PRODUCT USED FOR UNKNOWN INDICATION
     Route: 065

REACTIONS (12)
  - Syncope [Unknown]
  - Eructation [Unknown]
  - Laceration [Unknown]
  - Onychoclasis [Not Recovered/Not Resolved]
  - Insomnia [Unknown]
  - Muscle spasms [Unknown]
  - Fatigue [Unknown]
  - Hot flush [Unknown]
  - Depression [Unknown]
  - Hypotension [Unknown]
  - Nausea [Unknown]
  - Weight decreased [Unknown]
